FAERS Safety Report 9449510 (Version 2)
Quarter: 2013Q3

REPORT INFORMATION
  Report Type: Spontaneous
  Country: US (occurrence: US)
  Receive Date: 20130809
  Receipt Date: 20130826
  Transmission Date: 20140515
  Serious: Yes (Hospitalization)
  Sender: FDA-Public Use
  Company Number: US-BIOGENIDEC-2013BI072535

PATIENT
  Age: 36 Year
  Sex: Female

DRUGS (4)
  1. TECFIDERA [Suspect]
     Indication: MULTIPLE SCLEROSIS
     Route: 048
     Dates: start: 20130529, end: 20130727
  2. TOPAMAX [Concomitant]
  3. METOPROLOL TARTRATE [Concomitant]
  4. CYMBALTA [Concomitant]

REACTIONS (1)
  - Multiple sclerosis relapse [Unknown]
